FAERS Safety Report 5205511-7 (Version None)
Quarter: 2006Q4

REPORT INFORMATION
  Report Type: 
  Country: None (occurrence: None)
  Receive Date: 20061027
  Receipt Date: 20060505
  Transmission Date: 20070319
  Serious: Yes (Other)
  Sender: FDA-Public Use
  Company Number: HQWYE250810MAY06

PATIENT
  Age: 61 Year
  Sex: Female
  Weight: 58.11 kg

DRUGS (4)
  1. PREMARIN [Suspect]
     Indication: HOT FLUSH
     Dosage: 0.625 MG 1X PER 1 DAY, ORAL
     Route: 048
     Dates: start: 19970101
  2. SYNTHROID [Concomitant]
  3. MULTIVITAMINS, PLAIN (MULTIVITAMINS, PLAIN) [Concomitant]
  4. VITAMIN A AND D (ERGOCALCIFEROL/RETINOL) [Concomitant]

REACTIONS (1)
  - COELIAC DISEASE [None]
